FAERS Safety Report 25966220 (Version 1)
Quarter: 2025Q4

REPORT INFORMATION
  Report Type: Spontaneous
  Country: EU (occurrence: EU)
  Receive Date: 20251028
  Receipt Date: 20251028
  Transmission Date: 20260117
  Serious: Yes (Other)
  Sender: ROCHE
  Company Number: EU-ROCHE-10000414189

PATIENT
  Age: 45 Year
  Sex: Female

DRUGS (1)
  1. OCRELIZUMAB [Suspect]
     Active Substance: OCRELIZUMAB
     Indication: Relapsing-remitting multiple sclerosis
     Dosage: FIRST DOSE 300 OF OCRELIZUMAB 02/SEP/2025?SECOND DOSE 300 16/SEP/2025
     Route: 065
     Dates: start: 20250902

REACTIONS (1)
  - Autoimmune hepatitis [Unknown]
